FAERS Safety Report 8473595-9 (Version None)
Quarter: 2012Q2

REPORT INFORMATION
  Report Type: 
  Country: None (occurrence: None)
  Receive Date: 20120628
  Receipt Date: 20110729
  Transmission Date: 20120825
  Serious: Yes (Other)
  Sender: FDA-Public Use
  Company Number: US-MYLANLABS-2011S1013416

PATIENT
  Age: 33 Year
  Sex: Female

DRUGS (3)
  1. DEPAKOTE [Concomitant]
  2. CLOZAPINE [Suspect]
     Dates: end: 20110719
  3. ATIVAN [Concomitant]

REACTIONS (1)
  - GRANULOCYTOPENIA [None]
